FAERS Safety Report 23796256 (Version 1)
Quarter: 2024Q2

REPORT INFORMATION
  Report Type: Spontaneous
  Country: US (occurrence: US)
  Receive Date: 20240430
  Receipt Date: 20240430
  Transmission Date: 20240715
  Serious: Yes (Other)
  Sender: FDA-Public Use
  Company Number: US-BRISTOL-MYERS SQUIBB COMPANY-2024-066911

PATIENT
  Age: 67 Year
  Sex: Female
  Weight: 78.47 kg

DRUGS (1)
  1. POMALYST [Suspect]
     Active Substance: POMALIDOMIDE
     Indication: Plasma cell myeloma
     Dosage: 3 WEEKS ON, 1 WEEK OFF
     Route: 048

REACTIONS (1)
  - Plasma cell myeloma [Not Recovered/Not Resolved]
